FAERS Safety Report 10447243 (Version 1)
Quarter: 2014Q3

REPORT INFORMATION
  Report Type: Other
  Country: GB (occurrence: GB)
  Receive Date: 20140911
  Receipt Date: 20140911
  Transmission Date: 20150326
  Serious: Yes (Hospitalization, Other)
  Sender: FDA-Public Use
  Company Number: GB-MYLAN-2014M1003310

PATIENT

DRUGS (15)
  1. BETAHISTINE [Concomitant]
     Active Substance: BETAHISTINE
     Dosage: 16 MG, TID
  2. PREGABALIN. [Concomitant]
     Active Substance: PREGABALIN
  3. LISINOPRIL. [Suspect]
     Active Substance: LISINOPRIL
     Dosage: 20 MG, QD (WITHHELD TEMPORARILY, RECOMMENCED IN FULL PRIOR TO DISCHARGE)
     Route: 048
     Dates: end: 20120627
  4. SITAGLIPTIN [Concomitant]
     Active Substance: SITAGLIPTIN
     Dosage: 75 MG, QD
  5. ASPIRIN. [Concomitant]
     Active Substance: ASPIRIN
     Dosage: TAKEN IN MORNING
  6. DIAZEPAM. [Concomitant]
     Active Substance: DIAZEPAM
     Dosage: AT NIGHT
  7. GLICLAZIDE [Concomitant]
     Active Substance: GLICLAZIDE
  8. SIMVASTATIN. [Concomitant]
     Active Substance: SIMVASTATIN
     Dosage: AT NIGHT
  9. GTN [Concomitant]
     Active Substance: NITROGLYCERIN
  10. OMEPRAZOLE. [Concomitant]
     Active Substance: OMEPRAZOLE
     Dosage: 20 MG, QD
  11. BUPRENORPHINE [Concomitant]
     Active Substance: BUPRENORPHINE
     Dosage: WEEKLY
  12. METFORMIN [Concomitant]
     Active Substance: METFORMIN HYDROCHLORIDE
     Dosage: WITHHELD TEMPORARILY ON ADMISSION TO HOSPITAL BUT RECOMMENCED IN FULL PRIOR TO DISCHARGE
  13. PROPRANOLOL [Concomitant]
     Active Substance: PROPRANOLOL\PROPRANOLOL HYDROCHLORIDE
  14. SALBUTAMOL [Concomitant]
     Active Substance: ALBUTEROL
  15. ISOSORBIDE MONONITRATE. [Concomitant]
     Active Substance: ISOSORBIDE MONONITRATE
     Dosage: MODIFIED RELEASE

REACTIONS (5)
  - Diarrhoea [Unknown]
  - Renal failure acute [Recovered/Resolved]
  - Dehydration [Unknown]
  - Campylobacter infection [Unknown]
  - Vomiting [Unknown]

NARRATIVE: CASE EVENT DATE: 20120627
